FAERS Safety Report 18710890 (Version 1)
Quarter: 2021Q1

REPORT INFORMATION
  Report Type: Report from Study
  Country: GB (occurrence: GB)
  Receive Date: 20210107
  Receipt Date: 20210107
  Transmission Date: 20210419
  Serious: Yes (Hospitalization, Other)
  Sender: FDA-Public Use
  Company Number: GB-TEVA-2021-GB-1867816

PATIENT
  Age: 80 Year
  Sex: Female

DRUGS (4)
  1. METHOTREXATE SODIUM. [Suspect]
     Active Substance: METHOTREXATE SODIUM
     Indication: PRODUCT USED FOR UNKNOWN INDICATION
     Dosage: UNKNOWN
     Route: 065
  2. BENEPALI [Suspect]
     Active Substance: ETANERCEPT
     Indication: RHEUMATOID ARTHRITIS
     Dosage: 50 MG, WEEKLY
     Route: 058
     Dates: start: 20190925
  3. FOLIC ACID. [Concomitant]
     Active Substance: FOLIC ACID
     Indication: PRODUCT USED FOR UNKNOWN INDICATION
     Dosage: UNKNOWN
     Route: 065
  4. LEFLUNOMIDE. [Suspect]
     Active Substance: LEFLUNOMIDE
     Indication: PRODUCT USED FOR UNKNOWN INDICATION
     Dosage: UNKNOWN
     Route: 065

REACTIONS (32)
  - General physical health deterioration [Unknown]
  - Skin ulcer [Not Recovered/Not Resolved]
  - Hip arthroplasty [Unknown]
  - Frustration tolerance decreased [Unknown]
  - Cellulitis [Not Recovered/Not Resolved]
  - Bursitis [Not Recovered/Not Resolved]
  - Sleep disorder [Unknown]
  - Hypersomnia [Unknown]
  - Knee arthroplasty [Unknown]
  - Weight increased [Unknown]
  - Drug ineffective [Unknown]
  - Peripheral swelling [Unknown]
  - Mobility decreased [Recovering/Resolving]
  - Localised infection [Unknown]
  - Mental disorder [Unknown]
  - Arthralgia [Not Recovered/Not Resolved]
  - Back pain [Not Recovered/Not Resolved]
  - Weight decreased [Unknown]
  - Urinary tract infection [Not Recovered/Not Resolved]
  - Renal cyst [Not Recovered/Not Resolved]
  - Eczema [Unknown]
  - Arthropathy [Unknown]
  - Rheumatoid arthritis [Unknown]
  - Alopecia [Unknown]
  - Cataract [Unknown]
  - Balance disorder [Not Recovered/Not Resolved]
  - Anaemia [Unknown]
  - Abdominal distension [Recovering/Resolving]
  - Malaise [Unknown]
  - Fatigue [Unknown]
  - Loss of personal independence in daily activities [Not Recovered/Not Resolved]
  - Coma [Unknown]
